FAERS Safety Report 10173846 (Version 1)
Quarter: 2014Q2

REPORT INFORMATION
  Report Type: Spontaneous
  Country: FR (occurrence: FR)
  Receive Date: 20140515
  Receipt Date: 20140515
  Transmission Date: 20141212
  Serious: Yes (Hospitalization)
  Sender: FDA-Public Use
  Company Number: FR-SA-2014SA057873

PATIENT
  Age: 67 Year
  Sex: Female

DRUGS (14)
  1. COAPROVEL [Suspect]
     Indication: HYPERTENSION
     Route: 048
     Dates: end: 201402
  2. TEMERIT [Suspect]
     Indication: HYPERTENSION
     Route: 048
     Dates: end: 20140216
  3. AMLOR [Suspect]
     Indication: HYPERTENSION
     Route: 048
  4. PREVISCAN [Suspect]
     Indication: ATRIAL FIBRILLATION
     Route: 048
     Dates: start: 20140116, end: 201402
  5. FLECAINE [Concomitant]
     Dates: start: 20140116, end: 20140216
  6. CRESTOR [Concomitant]
  7. ALENDRONIC ACID [Concomitant]
  8. LEVOTHYROX [Concomitant]
  9. LEVEMIR [Concomitant]
  10. NOVOMIX [Concomitant]
  11. PHYSIOTENS [Concomitant]
  12. ZOLTUM [Concomitant]
  13. AZOPT [Concomitant]
  14. DUOTRAV [Concomitant]

REACTIONS (3)
  - Bradycardia [Recovered/Resolved]
  - Bundle branch block right [Recovered/Resolved]
  - Renal failure acute [Recovered/Resolved]
